FAERS Safety Report 18356818 (Version 1)
Quarter: 2020Q4

REPORT INFORMATION
  Report Type: Spontaneous
  Country: CA (occurrence: CA)
  Receive Date: 20201007
  Receipt Date: 20201007
  Transmission Date: 20210114
  Serious: Yes (Other)
  Sender: FDA-Public Use
  Company Number: CA-DUCHESNAY-2020CA000130

PATIENT
  Age: 42 Year
  Sex: Female

DRUGS (1)
  1. PREGVIT (MINERALS\POTASSIUM IODIDE\VITAMINS) [Suspect]
     Active Substance: MINERALS\POTASSIUM IODIDE\VITAMINS
     Indication: PRODUCT USED FOR UNKNOWN INDICATION
     Dosage: 1 PINK IN AM AND 1 BLUE IN PM
     Route: 048
     Dates: start: 202004, end: 202004

REACTIONS (3)
  - Vaginal haemorrhage [Not Recovered/Not Resolved]
  - Abortion spontaneous [Not Recovered/Not Resolved]
  - Menorrhagia [Not Recovered/Not Resolved]

NARRATIVE: CASE EVENT DATE: 202004
